FAERS Safety Report 20407134 (Version 1)
Quarter: 2022Q1

REPORT INFORMATION
  Report Type: Spontaneous
  Country: US (occurrence: None)
  Receive Date: 20220131
  Receipt Date: 20220131
  Transmission Date: 20220423
  Serious: Yes (Hospitalization)
  Sender: FDA-Public Use
  Company Number: None

PATIENT
  Age: 82 Year
  Sex: Female
  Weight: 74 kg

DRUGS (1)
  1. APIXABAN [Suspect]
     Active Substance: APIXABAN
     Indication: Arteriovenous fistula occlusion
     Dosage: FREQUENCY : TWICE A DAY;?
     Route: 048
     Dates: start: 20211006, end: 20211027

REACTIONS (7)
  - Haematochezia [None]
  - Abdominal pain lower [None]
  - Rectal haemorrhage [None]
  - Gastrointestinal haemorrhage [None]
  - Haemoglobin decreased [None]
  - Diverticulum intestinal haemorrhagic [None]
  - Anaemia of chronic disease [None]

NARRATIVE: CASE EVENT DATE: 20211027
